FAERS Safety Report 21986890 (Version 2)
Quarter: 2023Q1

REPORT INFORMATION
  Report Type: Spontaneous
  Country: BE (occurrence: BE)
  Receive Date: 20230213
  Receipt Date: 20230216
  Transmission Date: 20230417
  Serious: Yes (Other)
  Sender: FDA-Public Use
  Company Number: BE-PFIZER INC-202300053097

PATIENT
  Age: 24 Year

DRUGS (1)
  1. METHOTREXATE [Suspect]
     Active Substance: METHOTREXATE
     Dosage: UNK
     Route: 037
     Dates: start: 2005

REACTIONS (3)
  - Growth hormone deficiency [Unknown]
  - Hypopituitarism [Unknown]
  - Hypoglycaemia [Unknown]
